FAERS Safety Report 10247580 (Version 1)
Quarter: 2014Q2

REPORT INFORMATION
  Report Type: Spontaneous
  Country: IT (occurrence: None)
  Receive Date: 20140617
  Receipt Date: 20140617
  Transmission Date: 20141212
  Serious: Yes (Hospitalization)
  Sender: FDA-Public Use
  Company Number: AUR-APL-2014-06356

PATIENT
  Sex: Male

DRUGS (1)
  1. TAMSULOSIN AUROBINDO (TAMSULOSIN) UNKNOWN, UNKNOWN, [Suspect]
     Indication: PRODUCT USED FOR UNKNOWN INDICATION
     Dosage: UNKNOWN

REACTIONS (2)
  - Bradyphrenia [None]
  - Drug abuse [None]
